FAERS Safety Report 8162019-7 (Version None)
Quarter: 2012Q1

REPORT INFORMATION
  Report Type: 
  Country: None (occurrence: None)
  Receive Date: 20120224
  Receipt Date: 20110503
  Transmission Date: 20120608
  Serious: No
  Sender: FDA-Public Use
  Company Number: US-BRISTOL-MYERS SQUIBB COMPANY-15714439

PATIENT

DRUGS (3)
  1. METFORMIN HCL [Suspect]
     Indication: DIABETES MELLITUS
     Dosage: 500MG ORAL,2 IN 1DAY
     Route: 048
  2. ACTOS [Suspect]
     Route: 048
  3. SULFONYLUREA [Concomitant]
     Indication: DIABETES MELLITUS

REACTIONS (1)
  - WEIGHT DECREASED [None]
